FAERS Safety Report 9198426 (Version 1)
Quarter: 2013Q1

REPORT INFORMATION
  Report Type: Spontaneous
  Country: US (occurrence: None)
  Receive Date: 20130327
  Receipt Date: 20130327
  Transmission Date: 20140127
  Serious: Yes (Life-Threatening, Hospitalization)
  Sender: FDA-Public Use
  Company Number: None

PATIENT
  Age: 77 Year
  Sex: Female
  Weight: 80.29 kg

DRUGS (12)
  1. JANUVIA 100 MG MERCK [Suspect]
     Indication: TYPE 2 DIABETES MELLITUS
     Dosage: 100 MG QD PO
     Route: 048
     Dates: start: 20080901, end: 20130321
  2. LANTUS INSULIN [Concomitant]
  3. NOVOLOG INSULIN PEN [Concomitant]
  4. DIOVAN HCT [Concomitant]
  5. FELODIPINE [Concomitant]
  6. CRESTOR [Concomitant]
  7. CALCIUM/VIT D [Concomitant]
  8. CARVEDILOL [Concomitant]
  9. COENZYME Q10 [Concomitant]
  10. PLAVIX [Concomitant]
  11. ZETIA [Concomitant]
  12. BENZONATATE [Concomitant]

REACTIONS (3)
  - Pancreatitis acute [None]
  - Pyrexia [None]
  - Chills [None]
